FAERS Safety Report 7474403-5 (Version None)
Quarter: 2011Q2

REPORT INFORMATION
  Report Type: 
  Country: None (occurrence: None)
  Receive Date: 20110512
  Receipt Date: 20110429
  Transmission Date: 20111010
  Serious: No
  Sender: FDA-Public Use
  Company Number: US-BAYER-2011-037264

PATIENT
  Age: 17 Year
  Sex: Female

DRUGS (2)
  1. VERAMYST [Concomitant]
     Indication: NASAL CONGESTION
     Dosage: UNK
     Dates: start: 20110412, end: 20110415
  2. AVELOX [Suspect]
     Indication: SINUSITIS
     Dosage: DAILY DOSE 400 MG
     Route: 048

REACTIONS (3)
  - ANXIETY [None]
  - THINKING ABNORMAL [None]
  - DEPRESSION [None]
